FAERS Safety Report 20467499 (Version 2)
Quarter: 2022Q2

REPORT INFORMATION
  Report Type: Other
  Country: JP (occurrence: None)
  Receive Date: 20220214
  Receipt Date: 20220601
  Transmission Date: 20220721
  Serious: Yes (Other)
  Sender: FDA-Public Use
  Company Number: JP-ROCHE-3023352

PATIENT

DRUGS (10)
  1. RITUXIMAB [Suspect]
     Active Substance: RITUXIMAB
     Indication: Diffuse large B-cell lymphoma refractory
     Dosage: CONTINUED UP TO SIX CYCLES
     Route: 065
  2. RITUXIMAB [Suspect]
     Active Substance: RITUXIMAB
     Indication: Follicular lymphoma
  3. GEMCITABINE [Suspect]
     Active Substance: GEMCITABINE
     Indication: Diffuse large B-cell lymphoma refractory
     Dosage: CONTINUED UP TO SIX CYCLES
     Route: 065
  4. GEMCITABINE [Suspect]
     Active Substance: GEMCITABINE
     Indication: Follicular lymphoma
  5. CARBOPLATIN [Suspect]
     Active Substance: CARBOPLATIN
     Indication: Diffuse large B-cell lymphoma refractory
     Dosage: CONTINUED UP TO SIX CYCLES
     Route: 065
  6. CARBOPLATIN [Suspect]
     Active Substance: CARBOPLATIN
     Indication: Follicular lymphoma
  7. DEXAMETHASONE [Suspect]
     Active Substance: DEXAMETHASONE
     Indication: Diffuse large B-cell lymphoma refractory
     Dosage: CONTINUED UP TO SIX CYCLES
     Route: 065
  8. DEXAMETHASONE [Suspect]
     Active Substance: DEXAMETHASONE
     Indication: Follicular lymphoma
  9. CISPLATIN [Suspect]
     Active Substance: CISPLATIN
     Indication: Diffuse large B-cell lymphoma refractory
     Dosage: CONTINUED UP TO SIX CYCLES
     Route: 065
  10. CISPLATIN [Suspect]
     Active Substance: CISPLATIN
     Indication: Follicular lymphoma

REACTIONS (6)
  - Acute kidney injury [Unknown]
  - Alanine aminotransferase increased [Unknown]
  - Hyperbilirubinaemia [Unknown]
  - Neutropenia [Unknown]
  - Febrile neutropenia [Unknown]
  - Thrombocytopenia [Unknown]
